FAERS Safety Report 4532225-9 (Version None)
Quarter: 2004Q4

REPORT INFORMATION
  Report Type: 
  Country: None (occurrence: None)
  Receive Date: 20041217
  Receipt Date: 20041201
  Transmission Date: 20050328
  Serious: Yes (Hospitalization)
  Sender: FDA-Public Use
  Company Number: DSA_25472_2004

PATIENT
  Age: 18 Year
  Sex: Female

DRUGS (3)
  1. LORAZEPAM [Suspect]
     Dosage: 8 MG ONCE PO
     Route: 048
     Dates: start: 20041128, end: 20041128
  2. BEER [Suspect]
     Dosage: 2 BOTTLE ONCE PO
     Route: 048
     Dates: start: 20041128, end: 20041128
  3. SPARKLING WINE [Suspect]
     Dosage: 0.5 L ONCE PO
     Route: 048
     Dates: start: 20041128, end: 20041128

REACTIONS (4)
  - ALCOHOL USE [None]
  - FATIGUE [None]
  - INTENTIONAL OVERDOSE [None]
  - VOMITING [None]
